FAERS Safety Report 5220010-4 (Version None)
Quarter: 2007Q1

REPORT INFORMATION
  Report Type: 
  Country: None (occurrence: None)
  Receive Date: 20070124
  Receipt Date: 20070124
  Transmission Date: 20070707
  Serious: Yes (Other)
  Sender: FDA-Public Use
  Company Number: None

PATIENT
  Age: 60 Year
  Sex: Female
  Weight: 90.2 kg

DRUGS (11)
  1. SIMVASTATIN [Suspect]
  2. ASCORBIC ACID [Concomitant]
  3. FLUVASTATIN NA [Concomitant]
  4. DOCUSATE NA [Concomitant]
  5. FERROUS GLUCONATE [Concomitant]
  6. HYPROMELLOSE [Concomitant]
  7. OMEPRAZOLE [Concomitant]
  8. CALCIUM 500 MG/VITAMIN D [Concomitant]
  9. VITAMIN D [Concomitant]
  10. VALSARTAN [Concomitant]
  11. MULTIVITAMIN [Concomitant]

REACTIONS (1)
  - MYALGIA [None]
